FAERS Safety Report 24024778 (Version 2)
Quarter: 2024Q2

REPORT INFORMATION
  Report Type: Report from Study
  Country: US (occurrence: US)
  Receive Date: 20240628
  Receipt Date: 20240628
  Transmission Date: 20240716
  Serious: No
  Sender: FDA-Public Use
  Company Number: US-ROCHE-2993653

PATIENT
  Age: 79 Year
  Sex: Female

DRUGS (4)
  1. ALECENSA [Suspect]
     Active Substance: ALECTINIB HYDROCHLORIDE
     Indication: Breast cancer female
     Dosage: TAKE 4 CAPSULE(S) BY MOUTH ONCE DAILY WITH FOOD
     Route: 048
     Dates: start: 20211216, end: 20221216
  2. ALECENSA [Suspect]
     Active Substance: ALECTINIB HYDROCHLORIDE
     Indication: Breast cancer metastatic
  3. ALECENSA [Suspect]
     Active Substance: ALECTINIB HYDROCHLORIDE
     Indication: Therapeutic drug monitoring
  4. ALECENSA [Suspect]
     Active Substance: ALECTINIB HYDROCHLORIDE
     Indication: Lung neoplasm malignant

REACTIONS (3)
  - Off label use [Unknown]
  - Aphthous ulcer [Unknown]
  - Fatigue [Unknown]
